FAERS Safety Report 22203416 (Version 2)
Quarter: 2023Q2

REPORT INFORMATION
  Report Type: Spontaneous
  Country: US (occurrence: US)
  Receive Date: 20230412
  Receipt Date: 20230419
  Transmission Date: 20230722
  Serious: No
  Sender: FDA-Public Use
  Company Number: US-GILEAD-2023-0623544

PATIENT
  Sex: Female

DRUGS (2)
  1. CAYSTON [Suspect]
     Active Substance: AZTREONAM
     Indication: Pseudomonas infection
     Dosage: UNK
     Route: 065
  2. CAYSTON [Suspect]
     Active Substance: AZTREONAM
     Indication: Bronchiectasis

REACTIONS (1)
  - Product prescribing issue [Unknown]
